FAERS Safety Report 14816370 (Version 5)
Quarter: 2019Q2

REPORT INFORMATION
  Report Type: Spontaneous
  Country: JP (occurrence: JP)
  Receive Date: 20180426
  Receipt Date: 20190620
  Transmission Date: 20190711
  Serious: Yes (Other)
  Sender: FDA-Public Use
  Company Number: JP-SHIRE-JP201815356

PATIENT

DRUGS (2)
  1. AZANIN [Concomitant]
     Active Substance: AZATHIOPRINE
     Indication: COLITIS ULCERATIVE
  2. LIALDA [Suspect]
     Active Substance: MESALAMINE
     Indication: COLITIS ULCERATIVE
     Dosage: 4800 MG, 1X/DAY:QD
     Route: 050
     Dates: start: 20171223

REACTIONS (2)
  - Abortion [Not Recovered/Not Resolved]
  - Exposure via partner [Unknown]

NARRATIVE: CASE EVENT DATE: 20180418
